FAERS Safety Report 16958042 (Version 1)
Quarter: 2019Q4

REPORT INFORMATION
  Report Type: Spontaneous
  Country: CN (occurrence: CN)
  Receive Date: 20191024
  Receipt Date: 20191024
  Transmission Date: 20200122
  Serious: Yes (Hospitalization)
  Sender: FDA-Public Use
  Company Number: CN-NOVOPROD-690802

PATIENT
  Age: 30 Year
  Sex: Female
  Weight: 59.5 kg

DRUGS (3)
  1. VICTOZA [Suspect]
     Active Substance: LIRAGLUTIDE
     Indication: BLOOD GLUCOSE ABNORMAL
     Dosage: 0.6 MG, QD
     Route: 058
     Dates: start: 20190919, end: 20190920
  2. LEVEMIR PENFILL [Suspect]
     Active Substance: INSULIN DETEMIR
     Indication: BLOOD GLUCOSE ABNORMAL
     Dosage: 300 IU, QD
     Route: 058
     Dates: start: 20190919, end: 20190921
  3. VICTOZA [Suspect]
     Active Substance: LIRAGLUTIDE
     Indication: APPETITE DISORDER

REACTIONS (3)
  - Pruritus [Recovering/Resolving]
  - Rash maculo-papular [Recovering/Resolving]
  - Face oedema [Recovering/Resolving]

NARRATIVE: CASE EVENT DATE: 20190920
